FAERS Safety Report 8843417 (Version 2)
Quarter: 2012Q4

REPORT INFORMATION
  Report Type: 
  Country: US (occurrence: US)
  Receive Date: 20121016
  Receipt Date: 20121017
  Transmission Date: 20130627
  Serious: Yes (Death)
  Sender: FDA-Public Use
  Company Number: US-ROCHE-1131960

PATIENT
  Sex: Female

DRUGS (2)
  1. XELODA [Suspect]
     Indication: HEPATIC NEOPLASM MALIGNANT
     Route: 065
     Dates: start: 20100809
  2. XELODA [Suspect]
     Indication: GALLBLADDER CANCER

REACTIONS (1)
  - Death [Fatal]
